FAERS Safety Report 7573621-5 (Version None)
Quarter: 2011Q2

REPORT INFORMATION
  Report Type: 
  Country: None (occurrence: None)
  Receive Date: 20110627
  Receipt Date: 20110620
  Transmission Date: 20111010
  Serious: Yes (Other)
  Sender: FDA-Public Use
  Company Number: FR-PFIZER INC-2011134960

PATIENT
  Age: 57 Year
  Sex: Male

DRUGS (6)
  1. LOVENOX [Concomitant]
     Indication: PROPHYLAXIS
     Dosage: 4000 IU, SINGLE
     Route: 058
     Dates: start: 20110511, end: 20110511
  2. CLINDAMYCIN HCL [Suspect]
     Indication: MALARIA
     Dosage: 700 MG, 3X/DAY
     Route: 042
     Dates: start: 20110510, end: 20110514
  3. ROCEPHIN [Concomitant]
     Indication: LUNG INFECTION
     Dosage: 1 DF, 1X/DAY
     Route: 042
     Dates: start: 20110511, end: 20110518
  4. PRIMPERAN TAB [Concomitant]
     Indication: VOMITING
     Dosage: 1 DF, 3X/DAY
     Route: 042
     Dates: start: 20110512, end: 20110516
  5. QUINIMAX [Suspect]
     Indication: MALARIA
     Dosage: 600 MG, 3X/DAY
     Route: 042
     Dates: start: 20110510, end: 20110514
  6. PARACETAMOL [Concomitant]
     Indication: PYREXIA
     Dosage: 1 G, 4X/DAY
     Route: 042
     Dates: start: 20110510

REACTIONS (3)
  - HYPOACUSIS [None]
  - TINNITUS [None]
  - NAUSEA [None]
